FAERS Safety Report 18539576 (Version 1)
Quarter: 2020Q4

REPORT INFORMATION
  Report Type: Spontaneous
  Country: US (occurrence: US)
  Receive Date: 20201123
  Receipt Date: 20201123
  Transmission Date: 20210114
  Serious: Yes (Hospitalization)
  Sender: FDA-Public Use
  Company Number: None

PATIENT
  Age: 44 Year
  Sex: Female
  Weight: 153.2 kg

DRUGS (20)
  1. MELOXICAM. [Concomitant]
     Active Substance: MELOXICAM
  2. FAMOTIDINE. [Concomitant]
     Active Substance: FAMOTIDINE
  3. MULTIPLE VITAMIN [Concomitant]
     Active Substance: VITAMINS
  4. ASPIRIN. [Concomitant]
     Active Substance: ASPIRIN
  5. HYDROCHLOROTHIAZIDE. [Concomitant]
     Active Substance: HYDROCHLOROTHIAZIDE
  6. CEFUROXIME. [Concomitant]
     Active Substance: CEFUROXIME
  7. DEXAMETHASONE. [Concomitant]
     Active Substance: DEXAMETHASONE
  8. BAMLANIVIMAB. [Suspect]
     Active Substance: BAMLANIVIMAB
     Indication: COVID-19
     Dosage: IV OVER 60 MIN
     Route: 042
     Dates: start: 20201119, end: 20201119
  9. GUAIFENESIN ER [Concomitant]
     Active Substance: GUAIFENESIN
  10. MONTELUKAST [Concomitant]
     Active Substance: MONTELUKAST SODIUM
  11. ZINC. [Concomitant]
     Active Substance: ZINC
  12. VITAMIN D [Concomitant]
     Active Substance: VITAMIN D NOS
  13. LABETALOL [Concomitant]
     Active Substance: LABETALOL\LABETALOL HYDROCHLORIDE
  14. DULOXETINE. [Concomitant]
     Active Substance: DULOXETINE
  15. POTASSIUM [Concomitant]
     Active Substance: POTASSIUM
  16. APIXABAN [Concomitant]
     Active Substance: APIXABAN
  17. BUPROPION ER [Concomitant]
     Active Substance: BUPROPION
  18. ACETAMINOPHEN. [Concomitant]
     Active Substance: ACETAMINOPHEN
  19. KETOROLAC [Concomitant]
     Active Substance: KETOROLAC TROMETHAMINE
  20. REMDESIVIR. [Concomitant]
     Active Substance: REMDESIVIR

REACTIONS (8)
  - Dyspnoea [None]
  - Myalgia [None]
  - Nail bed disorder [None]
  - Headache [None]
  - Diarrhoea [None]
  - Oxygen saturation decreased [None]
  - Fatigue [None]
  - Cough [None]

NARRATIVE: CASE EVENT DATE: 20201111
